FAERS Safety Report 5113631-0 (Version None)
Quarter: 2006Q3

REPORT INFORMATION
  Report Type: 
  Country: None (occurrence: None)
  Receive Date: 20060925
  Receipt Date: 20060801
  Transmission Date: 20061208
  Serious: Yes (Other)
  Sender: FDA-Public Use
  Company Number: GBWYE464901AUG06

PATIENT
  Sex: Male
  Weight: 74 kg

DRUGS (9)
  1. ENBREL [Suspect]
     Indication: RHEUMATOID ARTHRITIS
     Route: 058
     Dates: start: 20060707, end: 20060801
  2. ETORICOXIB [Concomitant]
     Indication: RHEUMATOID ARTHRITIS
     Route: 048
     Dates: start: 20041001
  3. ARAVA [Concomitant]
     Indication: RHEUMATOID ARTHRITIS
     Route: 048
     Dates: start: 20040501
  4. FOLIC ACID [Concomitant]
     Indication: RHEUMATOID ARTHRITIS
     Route: 048
     Dates: start: 20050201
  5. CALCICHEW-D3 FORTE [Concomitant]
     Indication: PROPHYLAXIS
     Dosage: UNKNOWN
     Route: 048
     Dates: start: 20051101
  6. RISEDRONATE [Concomitant]
     Indication: PROPHYLAXIS
     Route: 048
     Dates: start: 20051101
  7. METHOTREXATE [Concomitant]
     Indication: RHEUMATOID ARTHRITIS
     Route: 048
     Dates: start: 20050201
  8. PREDNISOLONE [Concomitant]
     Indication: RHEUMATOID ARTHRITIS
     Route: 048
     Dates: start: 20040701
  9. CODEINE PHOSPHATE [Concomitant]
     Indication: PAIN
     Route: 048
     Dates: start: 20050801

REACTIONS (5)
  - BLEEDING TIME PROLONGED [None]
  - BLISTER [None]
  - IMPAIRED HEALING [None]
  - LIP BLISTER [None]
  - VASCULITIS [None]
